FAERS Safety Report 4347368-2 (Version None)
Quarter: 2004Q2

REPORT INFORMATION
  Report Type: 
  Country: None (occurrence: None)
  Receive Date: 20040421
  Receipt Date: 20030320
  Transmission Date: 20050107
  Serious: Yes (Hospitalization)
  Sender: FDA-Public Use
  Company Number: 1553-164-1

PATIENT
  Age: 72 Year
  Sex: Male
  Weight: 87.5442 kg

DRUGS (7)
  1. DEXFERRUM [Suspect]
     Indication: ANAEMIA
     Dosage: 400MG IV
     Route: 042
     Dates: start: 20030320
  2. DEXFERRUM [Suspect]
     Indication: MYELODYSPLASTIC SYNDROME
     Dosage: 400MG IV
     Route: 042
     Dates: start: 20030320
  3. LOPRESSOR [Concomitant]
  4. LANOXIN [Concomitant]
  5. ZOCOR [Concomitant]
  6. SALSALATE [Concomitant]
  7. COUMADIN [Concomitant]

REACTIONS (7)
  - ABDOMINAL PAIN UPPER [None]
  - CHEST DISCOMFORT [None]
  - CYANOSIS [None]
  - DYSPNOEA [None]
  - HEART RATE DECREASED [None]
  - HYPOTENSION [None]
  - VOMITING [None]
